FAERS Safety Report 8080996-X (Version None)
Quarter: 2012Q1

REPORT INFORMATION
  Report Type: 
  Country: None (occurrence: None)
  Receive Date: 20120130
  Receipt Date: 20120120
  Transmission Date: 20120608
  Serious: Yes (Other)
  Sender: FDA-Public Use
  Company Number: US-MILLENNIUM PHARMACEUTICALS, INC.-2012-00454

PATIENT
  Age: 53 Year
  Sex: Female

DRUGS (4)
  1. VELCADE [Suspect]
     Indication: MULTIPLE MYELOMA
  2. PREDNISONE TAB [Concomitant]
     Indication: MULTIPLE MYELOMA
  3. MELPHALAN HYDROCHLORIDE [Concomitant]
     Indication: MULTIPLE MYELOMA
  4. LACRI-LUBE [Concomitant]
     Indication: PLASMACYTOMA

REACTIONS (2)
  - EYEBALL RUPTURE [None]
  - FALL [None]
